FAERS Safety Report 20730244 (Version 1)
Quarter: 2022Q2

REPORT INFORMATION
  Report Type: Spontaneous
  Country: NL (occurrence: NL)
  Receive Date: 20220420
  Receipt Date: 20220420
  Transmission Date: 20220721
  Serious: Yes (Hospitalization, Other)
  Sender: FDA-Public Use
  Company Number: NL-Daleco-2018-NL-000053

PATIENT
  Sex: Female

DRUGS (6)
  1. LORAZEPAM [Interacting]
     Active Substance: LORAZEPAM
     Dosage: 1 MG, ALTERNATE DAY
  2. TRANYLCYPROMINE SULFATE [Interacting]
     Active Substance: TRANYLCYPROMINE SULFATE
     Indication: Depression
     Dosage: 60 MG, 1X/DAY (30 MG AT 8:00 AND 30MG AT 13:00)
     Dates: start: 201802
  3. TRANYLCYPROMINE SULFATE [Interacting]
     Active Substance: TRANYLCYPROMINE SULFATE
     Dosage: 60 MG, 1X/DAY (SPREAD OVER THE DAY AT 8:00 AND AT 11:00)
  4. ZUCLOPENTHIXOL ACETATE [Suspect]
     Active Substance: ZUCLOPENTHIXOL ACETATE
     Dosage: 4 MG, 1X/DAY
  5. ARIPIPRAZOLE [Suspect]
     Active Substance: ARIPIPRAZOLE
     Dosage: 15 MG, 1X/DAY
  6. THYRAX [LEVOTHYROXINE] [Concomitant]
     Dosage: 100 UG, 1X/DAY

REACTIONS (12)
  - Hypertensive crisis [Recovered/Resolved]
  - Angina pectoris [Unknown]
  - Potentiating drug interaction [Unknown]
  - Heart rate decreased [Not Recovered/Not Resolved]
  - Hypertension [Not Recovered/Not Resolved]
  - Fatigue [Not Recovered/Not Resolved]
  - Food interaction [Unknown]
  - Ear discomfort [Not Recovered/Not Resolved]
  - Contraindicated product administered [Unknown]
  - Headache [Not Recovered/Not Resolved]
  - Paraesthesia [Not Recovered/Not Resolved]
  - Head discomfort [Unknown]

NARRATIVE: CASE EVENT DATE: 20180301
